FAERS Safety Report 6274905-3 (Version None)
Quarter: 2009Q3

REPORT INFORMATION
  Report Type: 
  Country: None (occurrence: None)
  Receive Date: 20090721
  Receipt Date: 20090716
  Transmission Date: 20100115
  Serious: Yes (Death, Other)
  Sender: FDA-Public Use
  Company Number: US-WYE-H03790508

PATIENT
  Sex: Female

DRUGS (3)
  1. PREMPRO [Suspect]
  2. ESTRATEST [Suspect]
  3. PREMARIN [Suspect]

REACTIONS (1)
  - OVARIAN CANCER [None]
